FAERS Safety Report 7624743-1 (Version None)
Quarter: 2011Q3

REPORT INFORMATION
  Report Type: 
  Country: None (occurrence: None)
  Receive Date: 20110720
  Receipt Date: 20081208
  Transmission Date: 20111222
  Serious: Yes (Disabling, Other)
  Sender: FDA-Public Use
  Company Number: US-BAYER-200837414NA

PATIENT
  Age: 35 Year
  Sex: Female

DRUGS (6)
  1. MAGNEVIST [Suspect]
     Indication: NUCLEAR MAGNETIC RESONANCE IMAGING
     Dosage: 15 ML, ONCE
     Dates: start: 20020808, end: 20020808
  2. COUMADIN [Concomitant]
  3. ACETYLSALICYLIC ACID SRT [Concomitant]
  4. SENSIPAR [Concomitant]
  5. EPOGEN [Concomitant]
  6. MAGNEVIST [Suspect]
     Dates: start: 20050826, end: 20050826

REACTIONS (27)
  - EXFOLIATIVE RASH [None]
  - JOINT STIFFNESS [None]
  - GENERAL PHYSICAL HEALTH DETERIORATION [None]
  - JOINT SWELLING [None]
  - PRURITUS [None]
  - NEPHROGENIC SYSTEMIC FIBROSIS [None]
  - RASH MACULAR [None]
  - DEPRESSION [None]
  - OEDEMA PERIPHERAL [None]
  - FIBROSIS [None]
  - SKIN TIGHTNESS [None]
  - SKIN DISCOLOURATION [None]
  - FATIGUE [None]
  - PAIN IN EXTREMITY [None]
  - ANHEDONIA [None]
  - SKIN FIBROSIS [None]
  - SKIN HYPERTROPHY [None]
  - HYPOAESTHESIA [None]
  - PARAESTHESIA [None]
  - SCAR [None]
  - PAIN [None]
  - ANXIETY [None]
  - EMOTIONAL DISTRESS [None]
  - MOBILITY DECREASED [None]
  - MUSCULOSKELETAL PAIN [None]
  - PAIN OF SKIN [None]
  - NECK PAIN [None]
